FAERS Safety Report 8601291-3 (Version None)
Quarter: 2012Q3

REPORT INFORMATION
  Report Type: 
  Country: None (occurrence: None)
  Receive Date: 20120805
  Receipt Date: 20120801
  Transmission Date: 20120928
  Serious: Yes (Hospitalization)
  Sender: FDA-Public Use
  Company Number: US-009080

PATIENT
  Age: 38 Year
  Sex: Female
  Weight: 63.5036 kg

DRUGS (2)
  1. IMITREX [Concomitant]
  2. TRANEXAMIC ACID [Suspect]
     Indication: MENORRHAGIA
     Dosage: (2 TABLETS THREE TIMES DAILY FOR 5 DAYS ORAL)
     Route: 048
     Dates: start: 20120601, end: 20120701

REACTIONS (1)
  - PULMONARY EMBOLISM [None]
